FAERS Safety Report 7674602-3 (Version None)
Quarter: 2011Q3

REPORT INFORMATION
  Report Type: 
  Country: None (occurrence: None)
  Receive Date: 20110810
  Receipt Date: 20060509
  Transmission Date: 20111222
  Serious: Yes (Other)
  Sender: FDA-Public Use
  Company Number: TW-BAXTER-2011BH025715

PATIENT
  Age: 36 Year
  Sex: Female

DRUGS (2)
  1. CYCLOPHOSPHAMIDE [Suspect]
     Indication: OVARIAN EPITHELIAL CANCER
     Route: 065
  2. CISPLATIN [Suspect]
     Indication: OVARIAN EPITHELIAL CANCER
     Route: 065

REACTIONS (3)
  - PREMATURE DELIVERY [None]
  - MATERNAL EXPOSURE DURING PREGNANCY [None]
  - PREMATURE RUPTURE OF MEMBRANES [None]
